FAERS Safety Report 12899325 (Version 1)
Quarter: 2016Q4

REPORT INFORMATION
  Report Type: Spontaneous
  Country: US (occurrence: US)
  Receive Date: 20161029
  Receipt Date: 20161029
  Transmission Date: 20170207
  Serious: Yes (Hospitalization)
  Sender: FDA-Public Use
  Company Number: None

PATIENT
  Age: 56 Year
  Sex: Female
  Weight: 59.9 kg

DRUGS (3)
  1. DOXORUBICIN HYDROCHLORIDE. [Suspect]
     Active Substance: DOXORUBICIN HYDROCHLORIDE
     Dates: end: 20160705
  2. TAXOL [Suspect]
     Active Substance: PACLITAXEL
     Dates: end: 20161010
  3. CYCLOPHOSPHAMIDE. [Suspect]
     Active Substance: CYCLOPHOSPHAMIDE
     Dates: end: 20160705

REACTIONS (7)
  - Fibula fracture [None]
  - Gait disturbance [None]
  - Fracture [None]
  - Ankle fracture [None]
  - Asthenia [None]
  - Fall [None]
  - Neuropathy peripheral [None]

NARRATIVE: CASE EVENT DATE: 20161018
